FAERS Safety Report 25662164 (Version 2)
Quarter: 2025Q3

REPORT INFORMATION
  Report Type: Spontaneous
  Country: US (occurrence: US)
  Receive Date: 20250810
  Receipt Date: 20250822
  Transmission Date: 20251020
  Serious: Yes (Death)
  Sender: PHARMACOSMOS A/S
  Company Number: US-NEBO-702847

PATIENT
  Age: 73 Year
  Sex: Female

DRUGS (11)
  1. MONOFERRIC [Suspect]
     Active Substance: FERRIC DERISOMALTOSE
     Indication: Chronic kidney disease
     Dates: start: 20250711, end: 20250711
  2. MONOFERRIC [Suspect]
     Active Substance: FERRIC DERISOMALTOSE
     Indication: Anaemia
     Dates: start: 20250711, end: 20250711
  3. AMLODIPINE [Concomitant]
     Active Substance: AMLODIPINE BESYLATE
  4. LOSARTAN [Concomitant]
     Active Substance: LOSARTAN
  5. GLIPIZIDE [Concomitant]
     Active Substance: GLIPIZIDE
  6. ASPIRIN [Concomitant]
     Active Substance: ASPIRIN
  7. Folgard [Concomitant]
  8. ARANESP [Concomitant]
     Active Substance: DARBEPOETIN ALFA
  9. ATORVASTATIN [Concomitant]
     Active Substance: ATORVASTATIN
  10. CARVEDILOL [Concomitant]
     Active Substance: CARVEDILOL
  11. B Complex vitamin [Concomitant]

REACTIONS (1)
  - Hypersensitivity [Fatal]

NARRATIVE: CASE EVENT DATE: 20250711
